FAERS Safety Report 6611655-5 (Version None)
Quarter: 2010Q1

REPORT INFORMATION
  Report Type: 
  Country: None (occurrence: None)
  Receive Date: 20100303
  Receipt Date: 20100301
  Transmission Date: 20100710
  Serious: Yes (Other)
  Sender: FDA-Public Use
  Company Number: JP-SANOFI-AVENTIS-2010SA010450

PATIENT
  Sex: Female

DRUGS (2)
  1. ALLEGRA [Suspect]
     Route: 048
  2. NITROPEN [Suspect]

REACTIONS (1)
  - LOSS OF CONSCIOUSNESS [None]
